FAERS Safety Report 16518144 (Version 1)
Quarter: 2019Q3

REPORT INFORMATION
  Report Type: Spontaneous
  Country: RU (occurrence: RU)
  Receive Date: 20190702
  Receipt Date: 20190702
  Transmission Date: 20191004
  Serious: Yes (Other)
  Sender: FDA-Public Use
  Company Number: RU-UCBSA-2019027819

PATIENT
  Age: 33 Year
  Sex: Female

DRUGS (2)
  1. KEPPRA [Suspect]
     Active Substance: LEVETIRACETAM
     Dosage: 500 MG TABLET, IVIDE IT AND TAKE A DAILY DOSE OF 250 MG
  2. KEPPRA [Suspect]
     Active Substance: LEVETIRACETAM
     Indication: PRODUCT USED FOR UNKNOWN INDICATION
     Dosage: 250 MILLIGRAM, ONCE DAILY (QD)

REACTIONS (5)
  - Change in seizure presentation [Unknown]
  - Off label use [Unknown]
  - Wrong technique in product usage process [Unknown]
  - Hypersensitivity [Unknown]
  - Drug ineffective [Unknown]
